FAERS Safety Report 5691031-2 (Version None)
Quarter: 2008Q2

REPORT INFORMATION
  Report Type: 
  Country: None (occurrence: None)
  Receive Date: 20080401
  Receipt Date: 20080322
  Transmission Date: 20081010
  Serious: Yes (Hospitalization)
  Sender: FDA-Public Use
  Company Number: US-PFIZER INC-2008011829

PATIENT
  Sex: Female
  Weight: 59 kg

DRUGS (1)
  1. CARDURA [Suspect]
     Indication: HYPERTENSION
     Route: 048

REACTIONS (3)
  - DYSARTHRIA [None]
  - DYSPHAGIA [None]
  - HYPOGLOSSAL NERVE PARESIS [None]
